FAERS Safety Report 8984698 (Version 3)
Quarter: 2013Q1

REPORT INFORMATION
  Report Type: Spontaneous
  Country: VE (occurrence: VE)
  Receive Date: 20121226
  Receipt Date: 20130111
  Transmission Date: 20140127
  Serious: Yes (Death, Hospitalization)
  Sender: FDA-Public Use
  Company Number: PHHY2012VE118670

PATIENT
  Age: 80 Year
  Sex: Female

DRUGS (4)
  1. ACLASTA [Suspect]
     Indication: OSTEOPOROSIS
     Dosage: 5 MG, ANNUAL
     Route: 042
     Dates: start: 201209
  2. SODIUM CHLORIDE [Concomitant]
     Dosage: UNK UKN, UNK
     Route: 048
     Dates: end: 201210
  3. CALCIUM [Concomitant]
     Indication: OSTEOPOROSIS
     Dosage: UNK UKN, UNK
     Route: 048
     Dates: end: 201210
  4. ANTIBIOTICS [Concomitant]
     Indication: PNEUMONIA
     Dosage: UNK UKN, UNK
     Route: 048
     Dates: end: 201210

REACTIONS (12)
  - Chronic respiratory failure [Fatal]
  - Dyspnoea [Fatal]
  - Diverticulitis [Unknown]
  - Pneumonia [Unknown]
  - Transient ischaemic attack [Recovered/Resolved with Sequelae]
  - Aphasia [Unknown]
  - Mydriasis [Unknown]
  - Headache [Unknown]
  - Glassy eyes [Unknown]
  - Constipation [Unknown]
  - Hypertension [Not Recovered/Not Resolved]
  - Anaemia [Unknown]
